FAERS Safety Report 6169769-2 (Version None)
Quarter: 2009Q2

REPORT INFORMATION
  Report Type: 
  Country: None (occurrence: None)
  Receive Date: 20090428
  Receipt Date: 20090415
  Transmission Date: 20091009
  Serious: Yes (Hospitalization, Other)
  Sender: FDA-Public Use
  Company Number: DE-AMGEN-UK337822

PATIENT
  Age: 53 Year
  Sex: Male

DRUGS (30)
  1. MIMPARA [Suspect]
     Indication: HYPERPARATHYROIDISM SECONDARY
     Route: 048
     Dates: start: 20080408, end: 20090318
  2. ARANESP [Suspect]
     Indication: ANAEMIA
     Route: 058
     Dates: start: 20080408, end: 20080521
  3. VITAMIN D [Concomitant]
  4. CALCIUM [Concomitant]
  5. OMEPRAZOLE [Concomitant]
  6. FUROSEMID [Concomitant]
  7. ALFACALCIDOL [Concomitant]
  8. BISOPROLOL FUMARATE [Concomitant]
  9. DREISAVIT [Concomitant]
  10. FOSRENOL [Concomitant]
  11. ALLOPURINOL [Concomitant]
  12. DEKRISTOL [Concomitant]
  13. CALCIUM CARBONATE [Concomitant]
  14. EPOETIN ALFA [Concomitant]
     Route: 065
  15. RENAGEL [Concomitant]
  16. XANEF [Concomitant]
  17. BELOC ZOK [Concomitant]
  18. ENALAPRIL [Concomitant]
  19. METHYLDOPA [Concomitant]
  20. MINOXIDIL [Concomitant]
  21. NEORECORMON [Concomitant]
  22. CALCITRIOL [Concomitant]
  23. ERYPO [Concomitant]
  24. METOPROLOL [Concomitant]
  25. FERRO SANOL DUODENAL [Concomitant]
  26. CALCIUM ACETATE [Concomitant]
  27. SODIUM BICARBONATE [Concomitant]
  28. RAMIPRIL [Concomitant]
  29. HYDROCHLOROTHIAZIDE [Concomitant]
  30. FERRLECIT [Concomitant]

REACTIONS (1)
  - PARATHYROID TUMOUR BENIGN [None]
